FAERS Safety Report 8916648 (Version 2)
Quarter: 2012Q4

REPORT INFORMATION
  Report Type: Report from Study
  Country: US (occurrence: US)
  Receive Date: 20121120
  Receipt Date: 20121209
  Transmission Date: 20130627
  Serious: Yes (Other)
  Sender: FDA-Public Use
  Company Number: US-ABBOTT-12P-163-1008858-00

PATIENT
  Age: 18 Year
  Sex: Female

DRUGS (1)
  1. KALETRA [Suspect]
     Indication: ANTIVIRAL PROPHYLAXIS
     Dates: start: 20120814, end: 20120821

REACTIONS (1)
  - Abortion spontaneous [Unknown]
